FAERS Safety Report 6857468-0 (Version None)
Quarter: 2010Q3

REPORT INFORMATION
  Report Type: 
  Country: None (occurrence: None)
  Receive Date: 20100719
  Receipt Date: 20100709
  Transmission Date: 20110219
  Serious: Yes (Hospitalization)
  Sender: FDA-Public Use
  Company Number: ES-ELI_LILLY_AND_COMPANY-ES201007002196

PATIENT
  Age: 52 Year
  Sex: Male

DRUGS (3)
  1. CAPASTAT SULFATE [Suspect]
     Indication: PULMONARY TUBERCULOSIS
     Dosage: 1 G, DAILY (1/D)
     Route: 030
     Dates: end: 20100607
  2. CAPASTAT SULFATE [Suspect]
     Dosage: 1 G, 3/W
     Route: 030
  3. OMEPRAZOLE [Concomitant]
     Dosage: UNK, UNKNOWN
     Route: 048
     Dates: end: 20100610

REACTIONS (5)
  - DRUG TOXICITY [None]
  - HYPOCALCAEMIA [None]
  - HYPOMAGNESAEMIA [None]
  - HYPOVOLAEMIA [None]
  - RENAL FAILURE ACUTE [None]
